FAERS Safety Report 6252094-9 (Version None)
Quarter: 2009Q2

REPORT INFORMATION
  Report Type: 
  Country: None (occurrence: None)
  Receive Date: 20090630
  Receipt Date: 20050207
  Transmission Date: 20091009
  Serious: Yes (Hospitalization)
  Sender: FDA-Public Use
  Company Number: US-ROCHE-638956

PATIENT
  Sex: Male

DRUGS (13)
  1. ENFUVIRTIDE [Suspect]
     Route: 065
  2. NORVIR [Concomitant]
     Dosage: FREQUENCY REPORTED AS QD
     Dates: start: 20030615, end: 20051024
  3. EPIVIR [Concomitant]
     Dates: start: 20031215, end: 20040804
  4. CRIXIVAN [Concomitant]
     Dates: start: 20030101, end: 20040804
  5. FORTOVASE [Concomitant]
     Dates: start: 20030101, end: 20040804
  6. HIVID [Concomitant]
     Dates: start: 20030101, end: 20040804
  7. INVIRASE [Concomitant]
     Dates: start: 20030101, end: 20040404
  8. VIRACEPT [Concomitant]
     Dosage: FREQUENCY REPORTED AS QD
     Dates: start: 20030101
  9. VIRACEPT [Concomitant]
     Dosage: FREQUENCY REPORTED AS QD
     Dates: start: 20040101, end: 20040804
  10. VIRAMUNE [Concomitant]
     Dates: start: 20030101, end: 20040804
  11. ZIAGEN [Concomitant]
     Dates: start: 20030101, end: 20040804
  12. REYATAZ [Concomitant]
     Dosage: FREQUENCY REPORTED AS QD
     Dates: start: 20040101, end: 20040804
  13. DAPSONE [Concomitant]
     Dosage: FREQUENCY REPORTED AS QD
     Dates: start: 20041223, end: 20050101

REACTIONS (1)
  - THROMBOSIS [None]
